FAERS Safety Report 9006720 (Version 1)
Quarter: 2013Q1

REPORT INFORMATION
  Report Type: Spontaneous
  Country: EG (occurrence: EG)
  Receive Date: 20130110
  Receipt Date: 20130110
  Transmission Date: 20140127
  Serious: Yes (Hospitalization)
  Sender: FDA-Public Use
  Company Number: EG-ROCHE-1178065

PATIENT
  Age: 7 Year
  Sex: Male
  Weight: 14 kg

DRUGS (1)
  1. ACTEMRA [Suspect]
     Indication: JUVENILE IDIOPATHIC ARTHRITIS
     Route: 041

REACTIONS (1)
  - Allergic bronchitis [Recovered/Resolved]
